FAERS Safety Report 21537172 (Version 1)
Quarter: 2022Q4

REPORT INFORMATION
  Report Type: Other
  Country: None (occurrence: FR)
  Receive Date: 20221101
  Receipt Date: 20221101
  Transmission Date: 20230113
  Serious: Yes (Death)
  Sender: FDA-Public Use
  Company Number: FR-Vitruvias Therapeutics-2134374

PATIENT
  Age: 42 Year
  Sex: Male

DRUGS (5)
  1. LIDOCAINE [Suspect]
     Active Substance: LIDOCAINE
  2. HYDROXYZINE [Suspect]
     Active Substance: HYDROXYZINE HYDROCHLORIDE
  3. BROMAZEPAM [Suspect]
     Active Substance: BROMAZEPAM
  4. CITALOPRAM [Suspect]
     Active Substance: CITALOPRAM HYDROBROMIDE
  5. COCAINE [Suspect]
     Active Substance: COCAINE

REACTIONS (1)
  - Completed suicide [Fatal]
